FAERS Safety Report 4263745-2 (Version None)
Quarter: 2004Q1

REPORT INFORMATION
  Report Type: 
  Country: None (occurrence: None)
  Receive Date: 20040102
  Receipt Date: 20031218
  Transmission Date: 20041129
  Serious: Yes (Life-Threatening, Hospitalization)
  Sender: FDA-Public Use
  Company Number: EWC031237283

PATIENT
  Age: 41 Year
  Sex: Female

DRUGS (2)
  1. ZYPREXA [Suspect]
     Indication: BIPOLAR DISORDER
     Dosage: 5 MG/DAY
     Dates: start: 20030101, end: 20030101
  2. FLUCTINE (FLUOXETINE HYDROCHLORIDE) [Concomitant]

REACTIONS (2)
  - CARDIAC ARREST [None]
  - LONG QT SYNDROME CONGENITAL [None]
